FAERS Safety Report 21980556 (Version 1)
Quarter: 2023Q1

REPORT INFORMATION
  Report Type: Report from Study
  Country: US (occurrence: US)
  Receive Date: 20230211
  Receipt Date: 20230211
  Transmission Date: 20230417
  Serious: Yes (Hospitalization, Other)
  Sender: FDA-Public Use
  Company Number: US-ABBVIE-4300334

PATIENT
  Age: 74 Year
  Sex: Male
  Weight: 77 kg

DRUGS (15)
  1. DUOPA [Suspect]
     Active Substance: CARBIDOPA\LEVODOPA
     Indication: Parkinson^s disease
     Dosage: PERCUTANEOUS J-TUBE
     Route: 065
     Dates: start: 20220208
  2. DUOPA [Suspect]
     Active Substance: CARBIDOPA\LEVODOPA
  3. VITAMIN D [Concomitant]
     Active Substance: VITAMIN D NOS
     Indication: Supplementation therapy
  4. ELIQUIS [Concomitant]
     Active Substance: APIXABAN
     Indication: Anticoagulant therapy
  5. MYRBETRIQ [Concomitant]
     Active Substance: MIRABEGRON
     Indication: Bladder disorder
  6. MIRTAZAPINE [Concomitant]
     Active Substance: MIRTAZAPINE
     Indication: Memory impairment
  7. IPRATROPIUM [Concomitant]
     Active Substance: IPRATROPIUM
     Indication: Rhinorrhoea
  8. MIRALAX [Concomitant]
     Active Substance: POLYETHYLENE GLYCOL 3350
     Indication: Bowel movement irregularity
  9. PIPERACILLIN AND TAZOBACTAM [Concomitant]
     Active Substance: PIPERACILLIN SODIUM\TAZOBACTAM SODIUM
     Indication: Infection
  10. ARICEPT [Concomitant]
     Active Substance: DONEPEZIL HYDROCHLORIDE
     Indication: Memory impairment
  11. ambrosia [Concomitant]
     Indication: Parkinson^s disease
  12. TIKOSYN [Concomitant]
     Active Substance: DOFETILIDE
     Indication: Atrial fibrillation
  13. RITALIN [Concomitant]
     Active Substance: METHYLPHENIDATE HYDROCHLORIDE
     Indication: Movement disorder
  14. Carvidopa-Levodopa ER [Concomitant]
     Indication: Parkinson^s disease
  15. MELATONIN [Concomitant]
     Active Substance: MELATONIN
     Indication: Sleep disorder

REACTIONS (7)
  - Gait disturbance [Recovering/Resolving]
  - Infection [Recovering/Resolving]
  - Impaired work ability [Unknown]
  - Pyrexia [Recovering/Resolving]
  - Fall [Unknown]
  - Freezing phenomenon [Recovering/Resolving]
  - Insomnia [Recovered/Resolved]

NARRATIVE: CASE EVENT DATE: 20230203
